FAERS Safety Report 19893430 (Version 5)
Quarter: 2021Q4

REPORT INFORMATION
  Report Type: Spontaneous
  Country: US (occurrence: US)
  Receive Date: 20210928
  Receipt Date: 20211022
  Transmission Date: 20220303
  Serious: No
  Sender: FDA-Public Use
  Company Number: US-SANOFI-00782784

PATIENT
  Age: 79 Year
  Sex: Female

DRUGS (1)
  1. TOUJEO [Suspect]
     Active Substance: INSULIN GLARGINE
     Indication: Type 2 diabetes mellitus
     Dosage: 24 IU, QD
     Route: 065

REACTIONS (2)
  - Injection site haemorrhage [Unknown]
  - Device issue [Unknown]
